FAERS Safety Report 11517212 (Version 1)
Quarter: 2015Q3

REPORT INFORMATION
  Report Type: Spontaneous
  Country: US (occurrence: US)
  Receive Date: 20150917
  Receipt Date: 20150917
  Transmission Date: 20151125
  Serious: Yes (Hospitalization, Other)
  Sender: FDA-Public Use
  Company Number: US-RECKITT BENCKISER HEALTHCARE INT LIMITED-RB-07410-2015

PATIENT

DRUGS (1)
  1. MUCINEX [Suspect]
     Active Substance: GUAIFENESIN
     Indication: DRUG ABUSE
     Dosage: 10 DF, SINGLE
     Route: 065

REACTIONS (11)
  - Hydronephrosis [Recovered/Resolved]
  - Drug abuse [Recovered/Resolved]
  - Tachypnoea [Recovered/Resolved]
  - Overdose [Recovered/Resolved]
  - Ureteric obstruction [Recovered/Resolved]
  - Acute kidney injury [Recovered/Resolved]
  - Perinephric effusion [Recovered/Resolved]
  - Oliguria [Recovered/Resolved]
  - Haematuria [Recovered/Resolved]
  - Flank pain [Recovered/Resolved]
  - Dysuria [Recovered/Resolved]
